FAERS Safety Report 5273553-1 (Version None)
Quarter: 2007Q1

REPORT INFORMATION
  Report Type: 
  Country: None (occurrence: None)
  Receive Date: 20070321
  Receipt Date: 20070321
  Transmission Date: 20070707
  Serious: Yes (Hospitalization)
  Sender: FDA-Public Use
  Company Number: None

PATIENT
  Sex: Female
  Weight: 85.3 kg

DRUGS (10)
  1. CYTARABINE [Suspect]
     Dosage: 600 MG
  2. DEXAMETHASONE [Suspect]
     Dosage: 280 MG
  3. DOXORUBICIN HYDROCHLORIDE [Suspect]
     Dosage: 150 MG
  4. METHOTREXATE [Suspect]
     Dosage: 30 MG
  5. PEG-L-ASPARAGINASE (K-H) [Suspect]
     Dosage: 5000 MG
  6. THIOGUANINE [Suspect]
     Dosage: 840 MG
  7. VINCRISTINE SULFATE [Suspect]
     Dosage: 6 MG
  8. CYCLOPHOSPHAMIDE [Suspect]
     Dosage: 2000 MG
  9. BACTRIM [Concomitant]
  10. INFLUENZA VACCINE [Concomitant]

REACTIONS (26)
  - ACUTE HEPATIC FAILURE [None]
  - AMMONIA INCREASED [None]
  - BLOOD GLUCOSE DECREASED [None]
  - CONFUSIONAL STATE [None]
  - CONVULSION [None]
  - DISORIENTATION [None]
  - DYSURIA [None]
  - GENERAL PHYSICAL HEALTH DETERIORATION [None]
  - HEPATIC CONGESTION [None]
  - HEPATITIS [None]
  - HEPATITIS VIRAL [None]
  - HERPES VIRUS INFECTION [None]
  - HYPOTENSION [None]
  - HYPOTHERMIA [None]
  - METABOLIC ACIDOSIS [None]
  - NEUTROPENIA [None]
  - PHOTOPSIA [None]
  - REFUSAL OF TREATMENT BY PATIENT [None]
  - RENAL FAILURE ACUTE [None]
  - RESPIRATORY DISTRESS [None]
  - SOFT TISSUE DISORDER [None]
  - TACHYCARDIA [None]
  - THROMBOCYTOPENIA [None]
  - VAGINAL DISCHARGE [None]
  - VAGINAL PAIN [None]
  - VULVAL ULCERATION [None]
